FAERS Safety Report 15660908 (Version 1)
Quarter: 2018Q4

REPORT INFORMATION
  Report Type: Spontaneous
  Country: US (occurrence: US)
  Receive Date: 20181116
  Receipt Date: 20181116
  Transmission Date: 20190205
  Serious: No
  Sender: FDA-Public Use
  Company Number: None

PATIENT
  Age: 60 Year
  Sex: Female

DRUGS (1)
  1. BOTOX [Suspect]
     Active Substance: ONABOTULINUMTOXINA
     Indication: TORTICOLLIS
     Dosage: ?          OTHER DOSE:100 UNITS;OTHER FREQUENCY:EVERY 3 MONTH;?
     Route: 030
     Dates: start: 20150917

REACTIONS (2)
  - Unevaluable event [None]
  - Product packaging quantity issue [None]

NARRATIVE: CASE EVENT DATE: 20180927
